FAERS Safety Report 9836588 (Version 1)
Quarter: 2014Q1

REPORT INFORMATION
  Report Type: Spontaneous
  Country: US (occurrence: None)
  Receive Date: 20140116
  Receipt Date: 20140116
  Transmission Date: 20141002
  Serious: Yes (Hospitalization)
  Sender: FDA-Public Use
  Company Number: None

PATIENT
  Age: 83 Year
  Sex: Male
  Weight: 66.68 kg

DRUGS (6)
  1. DECITABINE [Suspect]
     Indication: ACUTE MYELOID LEUKAEMIA
     Dosage: CYCLE
     Dates: start: 20131128, end: 20131207
  2. ALPHAGAN [Concomitant]
  3. OPTHALMIC SOLUTION [Concomitant]
  4. CIPROFLOXACIN HCL [Concomitant]
  5. LISINOPRIL [Concomitant]
  6. VALACYCLOVIR [Concomitant]

REACTIONS (1)
  - Febrile neutropenia [None]
